FAERS Safety Report 19111799 (Version 1)
Quarter: 2021Q2

REPORT INFORMATION
  Report Type: Spontaneous
  Country: ES (occurrence: ES)
  Receive Date: 20210408
  Receipt Date: 20210408
  Transmission Date: 20210717
  Serious: Yes (Other)
  Sender: FDA-Public Use
  Company Number: ES-MYLANLABS-2021M1020996

PATIENT
  Age: 68 Year
  Sex: Female

DRUGS (5)
  1. ADIRO [Concomitant]
     Active Substance: ASPIRIN
     Dosage: 100 MILLIGRAM, QD
     Route: 048
     Dates: start: 20180803
  2. CALODIS [Concomitant]
     Dosage: 1000 MG / 880 IU TABLETS
     Route: 048
     Dates: start: 20190430
  3. AMLODIPINE [Suspect]
     Active Substance: AMLODIPINE BESYLATE
     Indication: HYPERTENSION
     Dosage: 10 MILLIGRAM, QD
     Route: 048
     Dates: start: 20201103, end: 20201207
  4. SIMVASTATINA [Concomitant]
     Active Substance: SIMVASTATIN
     Dosage: 20 MILLIGRAM, QD
     Route: 048
     Dates: start: 20120217
  5. PROLIA [Concomitant]
     Active Substance: DENOSUMAB
     Dosage: 6 MONTHS, 1 PRE?FILLED SYRINGE OF 1 ML
     Route: 058
     Dates: start: 20200224

REACTIONS (3)
  - Hand dermatitis [Recovering/Resolving]
  - Skin exfoliation [Recovering/Resolving]
  - Pruritus [Recovering/Resolving]

NARRATIVE: CASE EVENT DATE: 20201130
